FAERS Safety Report 12548265 (Version 1)
Quarter: 2016Q3

REPORT INFORMATION
  Report Type: Spontaneous
  Country: US (occurrence: None)
  Receive Date: 20160711
  Receipt Date: 20160711
  Transmission Date: 20161109
  Serious: Yes (Other)
  Sender: FDA-Public Use
  Company Number: None

PATIENT
  Age: 72 Year
  Sex: Male

DRUGS (3)
  1. POTASSIUM [Concomitant]
     Active Substance: POTASSIUM
  2. ZYTIGA [Suspect]
     Active Substance: ABIRATERONE ACETATE
     Indication: PROSTATE CANCER
     Dosage: 250MG 4 TABS ONE TIME DAILY ORAL
     Route: 048
     Dates: start: 20150228
  3. PREDNISONE. [Concomitant]
     Active Substance: PREDNISONE

REACTIONS (2)
  - Cerebrovascular accident [None]
  - Angioplasty [None]

NARRATIVE: CASE EVENT DATE: 20160418
